FAERS Safety Report 5150520-X (Version None)
Quarter: 2006Q4

REPORT INFORMATION
  Report Type: 
  Country: None (occurrence: None)
  Receive Date: 20061114
  Receipt Date: 20061109
  Transmission Date: 20070319
  Serious: Yes (Other)
  Sender: FDA-Public Use
  Company Number: JP-SP-2006-03012

PATIENT
  Sex: Female

DRUGS (2)
  1. IMMUCYST [Suspect]
     Indication: BLADDER CANCER
     Route: 043
     Dates: start: 20061023, end: 20061106
  2. PREDNISOLONE [Suspect]
     Route: 048

REACTIONS (3)
  - SEPSIS [None]
  - SEPTIC SHOCK [None]
  - SHOCK [None]
